FAERS Safety Report 5833225-9 (Version None)
Quarter: 2008Q3

REPORT INFORMATION
  Report Type: 
  Country: None (occurrence: None)
  Receive Date: 20080722
  Receipt Date: 20070102
  Transmission Date: 20090109
  Serious: Yes (Other)
  Sender: FDA-Public Use
  Company Number: 2007BI000163

PATIENT
  Sex: Female

DRUGS (13)
  1. AVONEX [Suspect]
     Indication: MULTIPLE SCLEROSIS
     Dosage: 30 UG;QW;IM; 30 UG;QW;IM
     Route: 030
     Dates: start: 19970101, end: 20030101
  2. AVONEX [Suspect]
     Indication: MULTIPLE SCLEROSIS
     Dosage: 30 UG;QW;IM; 30 UG;QW;IM
     Route: 030
     Dates: start: 20030101
  3. TRILEPTAL [Concomitant]
  4. NEURONTIN [Concomitant]
  5. KLONOPIN [Concomitant]
  6. PROZAC [Concomitant]
  7. TRAZODONE HCL [Concomitant]
  8. OXYCODONE HCL EXTENDED-RELEASE [Concomitant]
  9. OMEPRAZOLE [Concomitant]
  10. LEUOTHYROXINE [Concomitant]
  11. CELEBREX [Concomitant]
  12. LIPITOR [Concomitant]
  13. ASPIRIN [Concomitant]

REACTIONS (1)
  - CONVULSION [None]
